FAERS Safety Report 9306379 (Version 1)
Quarter: 2013Q2

REPORT INFORMATION
  Report Type: Spontaneous
  Country: US (occurrence: US)
  Receive Date: 20130523
  Receipt Date: 20130523
  Transmission Date: 20140414
  Serious: Yes (Hospitalization, Other)
  Sender: FDA-Public Use
  Company Number: US-BAYER-2013-061798

PATIENT
  Age: 40 Year
  Sex: Female
  Weight: 99.77 kg

DRUGS (11)
  1. YAZ [Suspect]
     Indication: POLYCYSTIC OVARIES
  2. YASMIN [Suspect]
  3. BEYAZ [Suspect]
     Indication: MENSTRUAL CYCLE MANAGEMENT
  4. GIANVI [Suspect]
  5. FOLIC ACID [Concomitant]
     Dosage: 1 MG, UNK
  6. IBUPROFEN [Concomitant]
     Dosage: 400 MG EVERY 6 HOURS; 800 MG TID (INTERPRETED AS THREE TIMES A DAY)
  7. OXYBUTYNIN [Concomitant]
     Dosage: 15 MG DAILY; 5 MG EVERY 8 HOURS
  8. ZOLOFT [Concomitant]
     Dosage: 50 MG, UNK
     Route: 048
  9. SERTRALINE [Concomitant]
     Dosage: 50 MG, UNK
     Route: 048
  10. VITAMIN D [Concomitant]
     Dosage: 1000 UNITS
     Route: 048
  11. ALBUTEROL [Concomitant]

REACTIONS (3)
  - Thrombosis [None]
  - Pulmonary embolism [Recovered/Resolved]
  - Thrombophlebitis superficial [Recovered/Resolved]
